FAERS Safety Report 7029584-4 (Version None)
Quarter: 2010Q4

REPORT INFORMATION
  Report Type: 
  Country: None (occurrence: None)
  Receive Date: 20101005
  Receipt Date: 20100929
  Transmission Date: 20110411
  Serious: Yes (Disabling, Other)
  Sender: FDA-Public Use
  Company Number: US-MERCK-0704USA05512

PATIENT
  Age: 80 Year
  Sex: Female

DRUGS (9)
  1. FOSAMAX [Suspect]
     Indication: OSTEOPOROSIS
     Route: 048
     Dates: start: 20010420, end: 20060717
  2. FOSAMAX [Suspect]
     Route: 048
     Dates: start: 19981117, end: 20010420
  3. FOSAMAX [Suspect]
     Indication: OSTEOPENIA
     Route: 048
     Dates: start: 20010420, end: 20060717
  4. FOSAMAX [Suspect]
     Route: 048
     Dates: start: 19981117, end: 20010420
  5. ACTONEL [Suspect]
     Indication: OSTEOPENIA
     Route: 065
     Dates: start: 20060717, end: 20070418
  6. SYNTHROID [Concomitant]
     Route: 065
     Dates: start: 19990101
  7. PREDNISONE [Suspect]
     Route: 065
     Dates: start: 20070101
  8. PROVERA [Concomitant]
     Route: 065
     Dates: start: 19981117, end: 20010420
  9. PREMARIN [Concomitant]
     Route: 065
     Dates: start: 19981117, end: 20010420

REACTIONS (10)
  - ARTHROPATHY [None]
  - ATROPHIC VULVOVAGINITIS [None]
  - FACE INJURY [None]
  - FALL [None]
  - GASTRIC DISORDER [None]
  - JOINT INJURY [None]
  - OSTEONECROSIS OF JAW [None]
  - RHEUMATOID ARTHRITIS [None]
  - RIB FRACTURE [None]
  - THYROID DISORDER [None]
